FAERS Safety Report 9195944 (Version 2)
Quarter: 2014Q3

REPORT INFORMATION
  Report Type: Report from Study
  Country: MX (occurrence: MX)
  Receive Date: 20130328
  Receipt Date: 20140708
  Transmission Date: 20150326
  Serious: Yes (Other)
  Sender: FDA-Public Use
  Company Number: PHHY2013MX027230

PATIENT
  Age: 69 Year
  Sex: Female

DRUGS (7)
  1. HALCION [Concomitant]
     Active Substance: TRIAZOLAM
     Indication: INSOMNIA
     Dosage: 0.5 UKN, UNK
     Dates: start: 201010
  2. CO-DIOVAN [Suspect]
     Active Substance: HYDROCHLOROTHIAZIDE\VALSARTAN
     Indication: CARDIAC DISORDER
     Dosage: 1 DF (160/12.5 MG) DAILY
     Route: 048
     Dates: start: 201010, end: 201406
  3. BUTILHIOSCINA [Concomitant]
     Dosage: 3 DF, DAILY
  4. CO-DIOVAN [Suspect]
     Active Substance: HYDROCHLOROTHIAZIDE\VALSARTAN
     Indication: HYPERTENSION
     Dosage: 0.5 DF (160/12.5 MG) DAILY
     Route: 048
     Dates: start: 201406
  5. VENALOT DEPOT [Concomitant]
     Indication: CARDIOVASCULAR DISORDER
     Dosage: 2 UKN, DAILY
     Dates: start: 201010
  6. ASPIRINE PROTECT [Concomitant]
     Active Substance: ASPIRIN
     Dosage: 1 DF, DAILY
  7. FLANAX [Concomitant]
     Active Substance: NAPROXEN SODIUM
     Dosage: 1 DF, DAILY

REACTIONS (9)
  - Vein discolouration [Not Recovered/Not Resolved]
  - Muscle spasms [Recovered/Resolved]
  - Dizziness [Unknown]
  - Wrong technique in drug usage process [Not Recovered/Not Resolved]
  - Heart rate decreased [Recovered/Resolved]
  - Medical device complication [Recovered/Resolved]
  - Pain [Recovered/Resolved]
  - Blood pressure diastolic decreased [Recovering/Resolving]
  - Procedural pain [Unknown]

NARRATIVE: CASE EVENT DATE: 201207
